FAERS Safety Report 8600506-5 (Version None)
Quarter: 2012Q3

REPORT INFORMATION
  Report Type: 
  Country: None (occurrence: None)
  Receive Date: 20120817
  Receipt Date: 20120809
  Transmission Date: 20120928
  Serious: Yes (Hospitalization)
  Sender: FDA-Public Use
  Company Number: US-BAYER-2012-082148

PATIENT
  Age: 45 Year
  Sex: Female

DRUGS (8)
  1. LEXAPRO [Concomitant]
     Dosage: 20 MG, UNK
     Dates: start: 20120102, end: 20120131
  2. SERTRALINE HYDROCHLORIDE [Concomitant]
     Dosage: 50 MG, UNK
     Dates: start: 20120122, end: 20120319
  3. ASPIRIN [Concomitant]
  4. CICLESONIDE [Concomitant]
     Dosage: 50 ?G, UNK
     Route: 045
     Dates: start: 20120229
  5. VITAMIN K TAB [Concomitant]
  6. YAZ [Suspect]
     Indication: CONTRACEPTION
  7. LEVOTHYROXINE SODIUM [Concomitant]
     Indication: HYPOTHYROIDISM
     Dosage: 100 ?G, UNK
     Dates: start: 20120122, end: 20120427
  8. DROSPIRENONE AND ETHINYL ESTRADIOL [Suspect]

REACTIONS (2)
  - PULMONARY EMBOLISM [None]
  - DEEP VEIN THROMBOSIS [None]
